FAERS Safety Report 12585911 (Version 3)
Quarter: 2016Q4

REPORT INFORMATION
  Report Type: Spontaneous
  Country: JP (occurrence: JP)
  Receive Date: 20160725
  Receipt Date: 20161004
  Transmission Date: 20170207
  Serious: Yes (Hospitalization, Other)
  Sender: FDA-Public Use
  Company Number: JP-ACTELION-A-CH2016-136206

PATIENT
  Age: 82 Year
  Sex: Male

DRUGS (17)
  1. ENALAPRIL MALEATE. [Concomitant]
     Active Substance: ENALAPRIL MALEATE
  2. ALPRAZOLAM. [Concomitant]
     Active Substance: ALPRAZOLAM
  3. FEBUXOSTAT. [Concomitant]
     Active Substance: FEBUXOSTAT
  4. FERROUS CITRATE [Concomitant]
     Active Substance: FERROUS CITRATE
  5. HEPARINOID [Concomitant]
     Active Substance: CHONDROITIN SULFATE (BOVINE)
  6. SALAZOSULFAPYRIDINE [Concomitant]
     Active Substance: SULFASALAZINE
  7. FLUVASTATIN SODIUM. [Concomitant]
     Active Substance: FLUVASTATIN SODIUM
  8. ACETAMINOPHEN. [Concomitant]
     Active Substance: ACETAMINOPHEN
  9. MITIGLINIDE CALCIUM [Concomitant]
  10. CLOBETASOL PROPRIONATE [Concomitant]
     Active Substance: CLOBETASOL PROPIONATE
  11. CILOSTAZOL. [Concomitant]
     Active Substance: CILOSTAZOL
  12. BROTIZOLAM [Concomitant]
     Active Substance: BROTIZOLAM
  13. OPSUMIT [Suspect]
     Active Substance: MACITENTAN
     Indication: PULMONARY ARTERIAL HYPERTENSION
     Dosage: 10 MG, QD
     Route: 048
     Dates: start: 20160328, end: 20160506
  14. ASPIRIN. [Concomitant]
     Active Substance: ASPIRIN
  15. LANSOPRAZOLE. [Concomitant]
     Active Substance: LANSOPRAZOLE
  16. URSODEOXYCHOLIC ACID [Concomitant]
     Active Substance: URSODIOL
  17. BETAMETHASONE DIPROPIONATE W/CALCIPOTRIOL [Concomitant]

REACTIONS (8)
  - Haematocrit decreased [Not Recovered/Not Resolved]
  - Red blood cell count decreased [Not Recovered/Not Resolved]
  - Blister rupture [Recovered/Resolved]
  - Anaemia [Not Recovered/Not Resolved]
  - Oedema peripheral [Recovered/Resolved]
  - Haemoglobin decreased [Not Recovered/Not Resolved]
  - Folate deficiency [Not Recovered/Not Resolved]
  - Scrotal oedema [Recovered/Resolved]

NARRATIVE: CASE EVENT DATE: 20160503
